FAERS Safety Report 16710591 (Version 2)
Quarter: 2019Q3

REPORT INFORMATION
  Report Type: Spontaneous
  Country: CZ (occurrence: CZ)
  Receive Date: 20190816
  Receipt Date: 20190904
  Transmission Date: 20191004
  Serious: Yes (Death, Other)
  Sender: FDA-Public Use
  Company Number: CZ-PFIZER INC-2019349046

PATIENT
  Age: 10 Year
  Sex: Male

DRUGS (9)
  1. VFEND [Suspect]
     Active Substance: VORICONAZOLE
     Indication: PULMONARY MYCOSIS
     Dosage: UNK
     Dates: start: 20190702, end: 20190713
  2. VFEND [Suspect]
     Active Substance: VORICONAZOLE
     Dosage: UNK
     Route: 048
     Dates: start: 20190717
  3. ECALTA [Suspect]
     Active Substance: ANIDULAFUNGIN
     Indication: PULMONARY MYCOSIS
     Dosage: UNK
     Dates: start: 20190611, end: 20190701
  4. ZOLOFT [Concomitant]
     Active Substance: SERTRALINE HYDROCHLORIDE
     Dosage: UNK
     Route: 048
  5. CYCLOPHOSPHAMID [Concomitant]
     Active Substance: CYCLOPHOSPHAMIDE
     Dosage: UNK
     Dates: start: 20190718, end: 20190718
  6. VFEND [Suspect]
     Active Substance: VORICONAZOLE
     Indication: PULMONARY MYCOSIS
     Dosage: 200 MG, 2X/DAY
     Route: 042
     Dates: start: 20190717
  7. CYTARABINE. [Concomitant]
     Active Substance: CYTARABINE
     Dosage: UNK
     Dates: start: 20190720, end: 20190722
  8. ONDANSETRON [Concomitant]
     Active Substance: ONDANSETRON
     Dosage: UNK
     Route: 048
  9. PURINETHOL [Concomitant]
     Active Substance: MERCAPTOPURINE
     Dosage: UNK
     Route: 048

REACTIONS (4)
  - Dyspnoea [Unknown]
  - Bronchial haemorrhage [Fatal]
  - Drug ineffective [Fatal]
  - Vascular rupture [Fatal]

NARRATIVE: CASE EVENT DATE: 20190723
